FAERS Safety Report 23844857 (Version 1)
Quarter: 2024Q2

REPORT INFORMATION
  Report Type: Spontaneous
  Country: LK (occurrence: LK)
  Receive Date: 20240511
  Receipt Date: 20240511
  Transmission Date: 20240716
  Serious: Yes (Death, Hospitalization)
  Sender: FDA-Public Use
  Company Number: LK-NOVITIUMPHARMA-2024LKNVP00760

PATIENT
  Age: 27 Year
  Sex: Female
  Weight: 78 kg

DRUGS (15)
  1. LACOSAMIDE [Suspect]
     Active Substance: LACOSAMIDE
     Indication: Status epilepticus
  2. MIDAZOLAM [Concomitant]
     Active Substance: MIDAZOLAM
     Indication: Status epilepticus
     Route: 042
  3. OXYTOCIN [Concomitant]
     Active Substance: OXYTOCIN
     Indication: Postpartum haemorrhage
  4. THIOPENTAL SODIUM [Concomitant]
     Active Substance: THIOPENTAL SODIUM
     Indication: Status epilepticus
  5. SODIUM BICARBONATE [Concomitant]
     Active Substance: SODIUM BICARBONATE
     Indication: Acidosis
  6. NOREPINEPHRINE [Concomitant]
     Active Substance: NOREPINEPHRINE\NOREPINEPHRINE BITARTRATE
     Indication: Hypotension
  7. MAGNESIUM SULFATE [Concomitant]
     Active Substance: MAGNESIUM SULFATE\MAGNESIUM SULFATE HEPTAHYDRATE
     Indication: Status epilepticus
  8. LEVETIRACETAM [Concomitant]
     Active Substance: LEVETIRACETAM
     Indication: Status epilepticus
  9. MORPHINE [Concomitant]
     Active Substance: MORPHINE
     Indication: Status epilepticus
  10. MANNITOL [Concomitant]
     Active Substance: MANNITOL
     Indication: Status epilepticus
  11. ATRACURIUM BESYLATE [Concomitant]
     Active Substance: ATRACURIUM BESYLATE
     Indication: Status epilepticus
  12. PHENYTOIN [Concomitant]
     Active Substance: PHENYTOIN
     Indication: Status epilepticus
  13. EPINEPHRINE [Concomitant]
     Active Substance: EPINEPHRINE
     Indication: Cardiomyopathy
     Dosage: 0.3-0.6 UG/KG/MIN
  14. DOPAMINE [Concomitant]
     Active Substance: DOPAMINE HYDROCHLORIDE
     Indication: Cardiomyopathy
     Dosage: 10-20 ?G/KG/MIN
  15. HYDROCORTISONE [Concomitant]
     Active Substance: HYDROCORTISONE
     Indication: Pulmonary oedema
     Route: 042

REACTIONS (1)
  - Drug ineffective [Fatal]
